FAERS Safety Report 5915831-6 (Version None)
Quarter: 2008Q4

REPORT INFORMATION
  Report Type: 
  Country: None (occurrence: None)
  Receive Date: 20081010
  Receipt Date: 20080930
  Transmission Date: 20090506
  Serious: Yes (Hospitalization, Other)
  Sender: FDA-Public Use
  Company Number: PL-PFIZER INC-2008082719

PATIENT
  Sex: Male
  Weight: 80 kg

DRUGS (3)
  1. XANAX [Suspect]
     Indication: NEUROSIS
     Dosage: DAILY DOSE:1.5MG
     Route: 048
     Dates: start: 20080601, end: 20080610
  2. ALPRAZOLAM [Suspect]
     Indication: NEUROSIS
     Dosage: DAILY DOSE:1.5MG
     Route: 048
     Dates: start: 20080601, end: 20080610
  3. ZOLPIDEM [Suspect]
     Indication: NEUROSIS
     Dosage: DAILY DOSE:10MG
     Route: 048
     Dates: start: 20080601, end: 20080610

REACTIONS (4)
  - BALANCE DISORDER [None]
  - CONFUSIONAL STATE [None]
  - ROAD TRAFFIC ACCIDENT [None]
  - SOMNOLENCE [None]
